FAERS Safety Report 23848691 (Version 3)
Quarter: 2024Q4

REPORT INFORMATION
  Report Type: Spontaneous
  Country: US (occurrence: US)
  Receive Date: 20240513
  Receipt Date: 20241209
  Transmission Date: 20250115
  Serious: Yes (Hospitalization, Other)
  Sender: SANOFI AVENTIS
  Company Number: US-SA-SAC20240510000050

PATIENT
  Age: 6 Year
  Sex: Female

DRUGS (6)
  1. DUPIXENT [Suspect]
     Active Substance: DUPILUMAB
     Indication: Eczema
     Dosage: 600 MG, 1X
     Route: 058
     Dates: start: 202403, end: 202403
  2. DUPIXENT [Suspect]
     Active Substance: DUPILUMAB
     Dosage: 300 MG, QM
     Route: 058
     Dates: start: 20240426
  3. TACROLIMUS [Concomitant]
     Active Substance: TACROLIMUS
     Dosage: UNK
     Route: 048
  4. CLOBETASOL [Concomitant]
     Active Substance: CLOBETASOL
  5. TRIAMCINOLONE [Concomitant]
     Active Substance: TRIAMCINOLONE
  6. MUPIROCIN [Concomitant]
     Active Substance: MUPIROCIN

REACTIONS (16)
  - Pneumonia respiratory syncytial viral [Unknown]
  - Pyrexia [Unknown]
  - Cough [Unknown]
  - Vomiting [Unknown]
  - Diarrhoea [Unknown]
  - Rash erythematous [Not Recovered/Not Resolved]
  - Staphylococcal infection [Recovered/Resolved]
  - Skin weeping [Recovered/Resolved]
  - Cardiac operation [Unknown]
  - Molluscum contagiosum [Unknown]
  - Cellulitis [Unknown]
  - Swelling face [Unknown]
  - Gingival swelling [Unknown]
  - Myalgia [Unknown]
  - Oropharyngeal pain [Unknown]
  - Arthralgia [Unknown]

NARRATIVE: CASE EVENT DATE: 20240101
